FAERS Safety Report 7574009 (Version 3)
Quarter: 2013Q4

REPORT INFORMATION
  Report Type: Spontaneous
  Country: US (occurrence: US)
  Receive Date: 20100907
  Receipt Date: 20131126
  Transmission Date: 20140711
  Serious: Yes (Hospitalization, Other)
  Sender: FDA-Public Use
  Company Number: US-BAYER-201032542NA

PATIENT
  Age: 23 Year
  Sex: Female

DRUGS (4)
  1. YAZ [Suspect]
     Dosage: UNK UNK, QD
     Route: 048
     Dates: start: 200802, end: 200912
  2. DOCUSATE SODIUM [Concomitant]
     Dosage: 100 MG, BID
     Route: 048
  3. HYDROCODONE W/ACETAMINOPHEN [Concomitant]
     Indication: PAIN
     Dosage: 5-500 MG, 1 TABLET EVERY 4 HOURS AS NEEDED OR 2 TABLETS EVERY 4 HOURS AS NEEDED
     Route: 048
  4. HYDROCODONE W/ACETAMINOPHEN [Concomitant]
     Indication: PAIN

REACTIONS (3)
  - Gallbladder injury [None]
  - Injury [None]
  - Cholelithiasis [None]
